FAERS Safety Report 7791991-X (Version None)
Quarter: 2011Q3

REPORT INFORMATION
  Report Type: 
  Country: None (occurrence: None)
  Receive Date: 20110929
  Receipt Date: 20110916
  Transmission Date: 20111222
  Serious: Yes (Death, Hospitalization)
  Sender: FDA-Public Use
  Company Number: KV200900716

PATIENT
  Age: 48 Year
  Sex: Female
  Weight: 55.0213 kg

DRUGS (18)
  1. NORTRIPTYLINE HCL [Concomitant]
  2. NEURONTIN [Concomitant]
  3. AMITRIPTYLINE HCL [Concomitant]
  4. CYCLOBENZAPRINE [Concomitant]
  5. METHADONE HCL [Concomitant]
  6. BACITRACIN [Concomitant]
  7. MORPHINE SULFATE INJ [Concomitant]
  8. ALPRAZOLAM [Concomitant]
  9. HYDROCODONE W/APAP (HYDROCODONE, PARACETAMOL) [Concomitant]
  10. ROPINIROLE [Concomitant]
  11. SEROQUEL [Concomitant]
  12. OMEPRAZOLE [Concomitant]
  13. FENTANYL [Concomitant]
  14. CYANOCOBALAMIN [Concomitant]
  15. CLINDAMYCIN [Concomitant]
  16. FOLIC ACID [Concomitant]
  17. MORPHINE SULFATE [Suspect]
     Indication: BACK PAIN
     Dosage: 15 MG, TID, ORAL
     Route: 048
     Dates: start: 20080411, end: 20081026
  18. TRAZODONE HCL [Concomitant]

REACTIONS (18)
  - OEDEMA [None]
  - CONVULSION [None]
  - CARDIOMEGALY [None]
  - ARTERIOSCLEROSIS CORONARY ARTERY [None]
  - VOMITING [None]
  - SKIN ULCER [None]
  - TOXICITY TO VARIOUS AGENTS [None]
  - PULMONARY CONGESTION [None]
  - MYOCLONUS [None]
  - WITHDRAWAL SYNDROME [None]
  - FALL [None]
  - NEPHROSCLEROSIS [None]
  - GRAND MAL CONVULSION [None]
  - UNRESPONSIVE TO STIMULI [None]
  - GROIN PAIN [None]
  - CONVERSION DISORDER [None]
  - WOUND [None]
  - OVERDOSE [None]
